FAERS Safety Report 9970392 (Version 1)
Quarter: 2014Q1

REPORT INFORMATION
  Report Type: Report from Study
  Country: US (occurrence: US)
  Receive Date: 20140306
  Receipt Date: 20140306
  Transmission Date: 20141002
  Serious: No
  Sender: FDA-Public Use
  Company Number: US-ABBVIE-13P-163-1151607-00

PATIENT
  Age: 32 Year
  Sex: Female
  Weight: 52.21 kg

DRUGS (16)
  1. HUMIRA [Suspect]
     Indication: PSORIASIS
     Route: 058
     Dates: start: 20130925
  2. HUMALOG [Concomitant]
     Indication: DIABETES MELLITUS
  3. SYNTHROID [Concomitant]
     Indication: AUTOIMMUNE THYROIDITIS
  4. ADVAIR [Concomitant]
     Indication: ASTHMA
  5. SINGULAIR [Concomitant]
     Indication: ASTHMA
  6. LAMICTAL [Concomitant]
     Indication: DEPRESSION
  7. WELLBUTRIN [Concomitant]
     Indication: DEPRESSION
  8. VITAMIN B 12 [Concomitant]
     Indication: VITAMIN SUPPLEMENTATION
  9. CALCIUM MAGNESIUM [Concomitant]
     Indication: VITAMIN SUPPLEMENTATION
  10. FOLIC ACID [Concomitant]
     Indication: VITAMIN SUPPLEMENTATION
  11. FISH OIL [Concomitant]
     Indication: VITAMIN SUPPLEMENTATION
  12. BRANCHED CHAIN AMINO ACIDS [Concomitant]
     Indication: VITAMIN SUPPLEMENTATION
  13. BIOTIN [Concomitant]
     Indication: VITAMIN SUPPLEMENTATION
  14. CLOBETASOL [Concomitant]
     Indication: PSORIASIS
  15. TOBRAMAX [Concomitant]
     Indication: PSORIASIS
  16. DERMASMOOTH [Concomitant]
     Indication: PSORIASIS

REACTIONS (1)
  - Injection site pain [Recovered/Resolved]
